FAERS Safety Report 7686332-2 (Version None)
Quarter: 2011Q3

REPORT INFORMATION
  Report Type: 
  Country: None (occurrence: None)
  Receive Date: 20110816
  Receipt Date: 20110808
  Transmission Date: 20111222
  Serious: Yes (Death)
  Sender: FDA-Public Use
  Company Number: US-GLAXOSMITHKLINE-A0914329A

PATIENT
  Age: 66 Year
  Sex: Male

DRUGS (1)
  1. VOTRIENT [Suspect]
     Indication: RENAL CANCER
     Dosage: 800MG PER DAY
     Route: 048
     Dates: start: 20100909

REACTIONS (8)
  - VOMITING [None]
  - NEOPLASM PROGRESSION [None]
  - NAUSEA [None]
  - THROAT IRRITATION [None]
  - DIVERTICULITIS [None]
  - ABDOMINAL PAIN UPPER [None]
  - INTESTINAL PERFORATION [None]
  - FAILURE TO THRIVE [None]
